FAERS Safety Report 7104911-8 (Version None)
Quarter: 2010Q4

REPORT INFORMATION
  Report Type: 
  Country: None (occurrence: None)
  Receive Date: 20101116
  Receipt Date: 20101108
  Transmission Date: 20110411
  Serious: Yes (Other)
  Sender: FDA-Public Use
  Company Number: FR-KINGPHARMUSA00001-K201001374

PATIENT
  Age: 38 Year
  Sex: Male

DRUGS (2)
  1. ALTACE [Suspect]
     Indication: ESSENTIAL HYPERTENSION
     Dosage: 5 MG, QD
     Route: 048
  2. IRFEN [Suspect]
     Indication: ACUTE TONSILLITIS
     Dosage: 600 MG, TID
     Route: 048
     Dates: start: 20100623, end: 20100626

REACTIONS (3)
  - DRUG INTERACTION [None]
  - HYPERTENSION [None]
  - RENAL FAILURE ACUTE [None]
